FAERS Safety Report 8667201 (Version 4)
Quarter: 2013Q2

REPORT INFORMATION
  Report Type: Report from Study
  Country: ES (occurrence: ES)
  Receive Date: 20120717
  Receipt Date: 20130604
  Transmission Date: 20140414
  Serious: Yes (Death, Hospitalization)
  Sender: FDA-Public Use
  Company Number: ES-BRISTOL-MYERS SQUIBB COMPANY-16749939

PATIENT
  Age: 68 Year
  Sex: Male

DRUGS (7)
  1. CISPLATIN [Suspect]
     Indication: ADENOCARCINOMA
     Route: 042
     Dates: start: 20120417, end: 20120525
  2. PEMETREXED DISODIUM [Suspect]
     Indication: ADENOCARCINOMA
     Route: 042
     Dates: start: 20120417, end: 20120525
  3. IBUPROFEN [Concomitant]
     Indication: MUSCULOSKELETAL CHEST PAIN
     Dates: end: 20120525
  4. PARACETAMOL [Concomitant]
     Indication: MUSCULOSKELETAL CHEST PAIN
     Dates: end: 20120525
  5. OMEPRAZOLE [Concomitant]
     Indication: PROPHYLAXIS
     Dates: end: 20120525
  6. METFORMIN [Concomitant]
     Indication: DIABETES MELLITUS
     Dates: end: 20120525
  7. SIMVASTATIN [Concomitant]
     Indication: DYSLIPIDAEMIA
     Dates: end: 20120525

REACTIONS (4)
  - Confusional state [Fatal]
  - Ketoacidosis [Recovered/Resolved]
  - Hyperglycaemia [Recovered/Resolved]
  - Blood urea increased [Recovered/Resolved]
